FAERS Safety Report 6090001-2 (Version None)
Quarter: 2009Q1

REPORT INFORMATION
  Report Type: 
  Country: None (occurrence: None)
  Receive Date: 20090224
  Receipt Date: 20090218
  Transmission Date: 20090719
  Serious: Yes (Other)
  Sender: FDA-Public Use
  Company Number: US-GILEAD-2009-0019926

PATIENT
  Sex: Male
  Weight: 88.53 kg

DRUGS (10)
  1. LETAIRIS [Suspect]
     Indication: PULMONARY HYPERTENSION
     Route: 048
     Dates: start: 20080901, end: 20090101
  2. NORVIR [Concomitant]
  3. LEXIVA [Concomitant]
  4. TRUVADA [Concomitant]
  5. INTERFERON [Concomitant]
  6. ZOLOFT [Concomitant]
  7. LEXAPRO [Concomitant]
  8. TRICOR [Concomitant]
  9. FLOMAX [Concomitant]
  10. XANAX [Concomitant]

REACTIONS (3)
  - DEPRESSION [None]
  - LIVER FUNCTION TEST ABNORMAL [None]
  - OVERDOSE [None]
